FAERS Safety Report 9418842 (Version 3)
Quarter: 2014Q2

REPORT INFORMATION
  Report Type: Spontaneous
  Country: CH (occurrence: CH)
  Receive Date: 20130725
  Receipt Date: 20140423
  Transmission Date: 20141212
  Serious: Yes (Hospitalization)
  Sender: FDA-Public Use
  Company Number: CH-JNJFOC-20130710507

PATIENT
  Age: 83 Year
  Sex: Female

DRUGS (12)
  1. XARELTO [Suspect]
     Indication: THROMBOSIS PROPHYLAXIS
     Route: 048
     Dates: start: 20130502, end: 20130522
  2. XARELTO [Suspect]
     Indication: KNEE ARTHROPLASTY
     Route: 048
     Dates: start: 20130502, end: 20130522
  3. NEBIVOLOL [Concomitant]
     Route: 065
  4. TEMESTA [Concomitant]
     Route: 065
  5. CALCIUM SANDOZ [Concomitant]
     Route: 065
  6. DAFALGAN [Concomitant]
     Route: 048
  7. COVERSUM [Concomitant]
     Route: 048
  8. NUTRIFLEX [Concomitant]
     Route: 065
  9. CEFAZOLIN [Concomitant]
     Indication: KNEE ARTHROPLASTY
     Route: 042
  10. DICLOFENAC [Concomitant]
     Indication: ANALGESIC THERAPY
     Route: 065
  11. METAMIZOLE [Concomitant]
     Indication: ANALGESIC THERAPY
     Route: 065
  12. METAMIZOLE [Concomitant]
     Indication: ANALGESIC THERAPY
     Route: 065

REACTIONS (1)
  - Hepatitis cholestatic [Recovered/Resolved]
